FAERS Safety Report 4821934-X (Version None)
Quarter: 2005Q4

REPORT INFORMATION
  Report Type: 
  Country: None (occurrence: None)
  Receive Date: 20051103
  Receipt Date: 20051019
  Transmission Date: 20060501
  Serious: Yes (Life-Threatening)
  Sender: FDA-Public Use
  Company Number: DSA_27322_2005

PATIENT
  Age: 26 Year
  Sex: Female

DRUGS (20)
  1. TEMESTA [Suspect]
     Dosage: 2 MG
     Dates: start: 20050914, end: 20050914
  2. TEMESTA [Suspect]
     Dosage: 4 MG
     Dates: start: 20050915, end: 20050916
  3. TEMESTA [Suspect]
     Dosage: 2.5 MG
     Dates: start: 20050917, end: 20050917
  4. TEMESTA [Suspect]
     Dosage: 2.5 MG
     Dates: start: 20050913, end: 20050913
  5. TEMESTA [Suspect]
     Dosage: 5 MG
     Dates: start: 20050912, end: 20050912
  6. TEMESTA [Suspect]
     Dosage: 3.75 MG
     Dates: start: 20050911, end: 20050911
  7. TEMESTA [Suspect]
     Dosage: 5 MG
     Dates: start: 20050910, end: 20050910
  8. TEMESTA [Suspect]
     Dosage: 4 MG
     Dates: start: 20050909, end: 20050909
  9. TEMESTA [Suspect]
     Dosage: 6 MG
     Dates: start: 20050908, end: 20050908
  10. TEMESTA [Suspect]
     Dosage: 7 MG
     Dates: start: 20050907, end: 20050907
  11. TEMESTA [Suspect]
     Dosage: 2 MG
     Dates: start: 20050906, end: 20050906
  12. CISORDINOL-ACUTARD [Suspect]
     Dosage: 100 MG
     Dates: start: 20050914, end: 20050915
  13. CISORDINOL-ACUTARD [Suspect]
     Dosage: 200 MG
     Dates: start: 20050911, end: 20050911
  14. CISORDINOL-ACUTARD [Concomitant]
     Dosage: 150 MG
     Dates: start: 20050909, end: 20050909
  15. CISORDINOL-ACUTARD [Suspect]
     Dosage: 200 MG
     Dates: start: 20050908, end: 20050908
  16. ZYREXA [Concomitant]
  17. DEPAKENE [Concomitant]
  18. HALDOL [Concomitant]
  19. TRUXAL [Concomitant]
  20. DOMINAL [Concomitant]

REACTIONS (3)
  - FIBRIN D DIMER INCREASED [None]
  - PULMONARY EMBOLISM [None]
  - TACHYCARDIA [None]
